FAERS Safety Report 17847863 (Version 1)
Quarter: 2020Q2

REPORT INFORMATION
  Report Type: Spontaneous
  Country: US (occurrence: US)
  Receive Date: 20200601
  Receipt Date: 20200601
  Transmission Date: 20200714
  Serious: No
  Sender: FDA-Public Use
  Company Number: US-PFIZER INC-2020212068

PATIENT
  Sex: Female

DRUGS (1)
  1. ERYTHROMYCIN. [Suspect]
     Active Substance: ERYTHROMYCIN
     Indication: PHARYNGITIS STREPTOCOCCAL
     Dosage: UNK

REACTIONS (3)
  - Burn of internal organs [Unknown]
  - Diarrhoea [Unknown]
  - Hypersensitivity [Unknown]
